FAERS Safety Report 10192552 (Version 1)
Quarter: 2014Q2

REPORT INFORMATION
  Report Type: Spontaneous
  Country: US (occurrence: US)
  Receive Date: 20140523
  Receipt Date: 20140523
  Transmission Date: 20141212
  Serious: Yes (Hospitalization, Other)
  Sender: FDA-Public Use
  Company Number: US-ASTELLAS-2014US005689

PATIENT
  Age: 67 Year
  Sex: Male

DRUGS (10)
  1. XTANDI [Suspect]
     Indication: PROSTATE CANCER
     Route: 048
     Dates: start: 20140107, end: 20140427
  2. XTANDI [Suspect]
     Dosage: 160 UNK, UNK
     Route: 048
     Dates: start: 20140515
  3. ABIRATERONE [Suspect]
     Indication: PROSTATE CANCER
     Route: 065
     Dates: start: 20140107, end: 20140427
  4. ABIRATERONE [Suspect]
     Dosage: 100 MG, UNK
     Route: 065
     Dates: start: 20140515
  5. PREDNISONE [Suspect]
     Indication: PRODUCT USED FOR UNKNOWN INDICATION
     Dosage: UNK, UNKNOWN FREQ.
     Route: 065
  6. ARMOUR THYROID [Concomitant]
     Indication: HYPOTHYROIDISM
     Route: 048
  7. BYSTOLIC [Concomitant]
     Indication: HYPERTENSION
     Route: 048
     Dates: start: 2011
  8. CARDIZEM                           /00489701/ [Concomitant]
     Indication: HYPERTENSION
     Route: 048
     Dates: start: 2010
  9. LISINOPRIL [Concomitant]
     Indication: HYPERTENSION
     Route: 048
     Dates: start: 20140212
  10. PANTOPRAZOLE [Concomitant]
     Indication: GASTROOESOPHAGEAL REFLUX DISEASE
     Route: 065

REACTIONS (4)
  - Pancreatitis [Unknown]
  - Hypokalaemia [Recovered/Resolved]
  - VIIth nerve paralysis [Recovered/Resolved]
  - Transient ischaemic attack [Recovered/Resolved]
